FAERS Safety Report 5820126-5 (Version None)
Quarter: 2008Q3

REPORT INFORMATION
  Report Type: 
  Country: None (occurrence: None)
  Receive Date: 20080721
  Receipt Date: 20080716
  Transmission Date: 20090109
  Serious: Yes (Other)
  Sender: FDA-Public Use
  Company Number: CHPA2008US11892

PATIENT
  Sex: Female

DRUGS (1)
  1. GAS-X EXTSTR CHEW TABS PEPPERMINT CREAM (NCH) (SIMETHICONE) CHEWABLE T [Suspect]
     Indication: FLATULENCE
     Dosage: ORAL
     Route: 048

REACTIONS (1)
  - RENAL CYST [None]
